FAERS Safety Report 8881710 (Version 1)
Quarter: 2012Q4

REPORT INFORMATION
  Report Type: 
  Country: US (occurrence: US)
  Receive Date: 20121101
  Receipt Date: 20121101
  Transmission Date: 20130627
  Serious: No
  Sender: FDA-Public Use
  Company Number: US-PFIZER INC-2012272742

PATIENT
  Age: 41 Year
  Sex: Female
  Weight: 61.22 kg

DRUGS (2)
  1. ZOLOFT [Suspect]
     Indication: ANXIETY
     Dosage: 100 mg, daily
     Dates: start: 201210
  2. ACIDOPHILUS [Concomitant]
     Indication: NUTRITIONAL SUPPLEMENT
     Dosage: UNK, daily

REACTIONS (1)
  - Micturition urgency [Not Recovered/Not Resolved]
